FAERS Safety Report 23377677 (Version 2)
Quarter: 2024Q1

REPORT INFORMATION
  Report Type: Other
  Country: US (occurrence: None)
  Receive Date: 20240108
  Receipt Date: 20240202
  Transmission Date: 20240409
  Serious: No
  Sender: FDA-Public Use
  Company Number: US-ROCHE-3486607

PATIENT
  Age: 66 Year
  Sex: Female

DRUGS (3)
  1. OCREVUS [Suspect]
     Active Substance: OCRELIZUMAB
     Indication: Multiple sclerosis
     Dosage: DOT: 12/JUN/2023, 14/DEC/2022, 27/OCT/2021, 17/FEB/2021, 12/DEC/2019, 14/JUN/2019, 06/20/2019, 2023-
     Route: 065
     Dates: start: 20181119
  2. COPAXONE [Concomitant]
     Active Substance: GLATIRAMER ACETATE
  3. TECFIDERA [Concomitant]
     Active Substance: DIMETHYL FUMARATE

REACTIONS (1)
  - COVID-19 [Unknown]
